FAERS Safety Report 9745967 (Version 2)
Quarter: 2014Q1

REPORT INFORMATION
  Report Type: Report from Study
  Country: DE (occurrence: DE)
  Receive Date: 20131211
  Receipt Date: 20140115
  Transmission Date: 20141002
  Serious: Yes (Other)
  Sender: FDA-Public Use
  Company Number: DE-BEH-2013039345

PATIENT
  Age: 74 Year
  Sex: Male
  Weight: 76 kg

DRUGS (14)
  1. PRIVIGEN [Suspect]
     Indication: HYPERGAMMAGLOBULINAEMIA BENIGN MONOCLONAL
     Dates: start: 20130528, end: 20130528
  2. PRIVIGEN [Suspect]
     Dates: start: 20130611, end: 20130611
  3. PRIVIGEN [Suspect]
     Dates: start: 20130628, end: 20130628
  4. PRIVIGEN [Suspect]
     Dates: start: 20130712, end: 20130712
  5. PRIVIGEN [Suspect]
     Dates: start: 20130726, end: 20130726
  6. PRIVIGEN [Suspect]
     Dates: start: 20130802, end: 20130802
  7. LYRICA [Concomitant]
     Dosage: STARTING FEB-2013
  8. FORTECORTIN [Concomitant]
     Dosage: FROM  MAR-2013 UNTIL JUN-2013
  9. VELCADE [Concomitant]
     Dosage: FROM MAR-2013 UNTIL MAR-2013
     Route: 058
  10. IBANDRONIC ACID [Concomitant]
     Dosage: FROM MAR-2013 UNTIL MAR-2013
  11. X-GEVA [Concomitant]
     Dosage: STARTING MAY 2013
  12. CALCIMAGON-D3 [Concomitant]
     Dosage: STARTING MAY 2013
  13. REVLIMID [Concomitant]
  14. THALIDOMID [Concomitant]
     Dosage: FROM MAR-2013 UNTIL MAY-2013

REACTIONS (1)
  - Bronchitis [Recovered/Resolved]
